FAERS Safety Report 17438412 (Version 1)
Quarter: 2020Q1

REPORT INFORMATION
  Report Type: Spontaneous
  Country: FR (occurrence: FR)
  Receive Date: 20200220
  Receipt Date: 20200220
  Transmission Date: 20200409
  Serious: Yes (Death, Hospitalization)
  Sender: FDA-Public Use
  Company Number: FR-ACCORD-172886

PATIENT
  Age: 70 Year
  Sex: Male
  Weight: 73 kg

DRUGS (17)
  1. LEVEMIR [Concomitant]
     Active Substance: INSULIN DETEMIR
  2. CRESTOR [Concomitant]
     Active Substance: ROSUVASTATIN CALCIUM
     Dosage: STRENGTH:5 MG
  3. FOLIC ACID. [Concomitant]
     Active Substance: FOLIC ACID
  4. XATRAL LP [Concomitant]
     Active Substance: ALFUZOSIN
     Dosage: STRENGTH: 10 MG
  5. LACTULOSE. [Concomitant]
     Active Substance: LACTULOSE
  6. LANSOYL [Concomitant]
     Active Substance: MINERAL OIL
  7. ALIMTA [Suspect]
     Active Substance: PEMETREXED DISODIUM
     Indication: BRONCHIAL CARCINOMA
     Route: 042
     Dates: start: 20190809, end: 20190809
  8. PRIMPERAN [Concomitant]
     Active Substance: METOCLOPRAMIDE HYDROCHLORIDE
     Dosage: STRENGTH: 10 MG, SCORED TABLET
  9. AZANTAC [Concomitant]
     Active Substance: RANITIDINE HYDROCHLORIDE
  10. PHOSPHONEUROS [Concomitant]
     Active Substance: CALCIUM PHOSPHATE, DIBASIC, ANHYDROUS\MAGNESIUM GLYCEROPHOSPHATE\PHOSPHORIC ACID\SODIUM PHOSPHATE, DIBASIC
  11. TRIATEC [Concomitant]
  12. PHYSIOTENS [Concomitant]
     Active Substance: MOXONIDINE
     Dosage: STRENGTH: 0.4 MG
  13. TINZAPARIN [Concomitant]
     Active Substance: TINZAPARIN
  14. NOVORAPID [Concomitant]
     Active Substance: INSULIN ASPART
  15. KARDEGIC [Concomitant]
     Active Substance: ASPIRIN DL-LYSINE
     Dosage: STRENGTH: 75 MG, POWDER FOR ORAL SOLUTION IN SACHET-DOSE
  16. CARBOPLATINE ACCORD [Suspect]
     Active Substance: CARBOPLATIN
     Indication: LUNG NEOPLASM MALIGNANT
     Route: 042
     Dates: start: 20190809, end: 20190809
  17. TRAMADOL. [Concomitant]
     Active Substance: TRAMADOL

REACTIONS (3)
  - Weight decreased [Fatal]
  - Asthenia [Fatal]
  - Decreased appetite [Fatal]

NARRATIVE: CASE EVENT DATE: 201908
